FAERS Safety Report 5861243-3 (Version None)
Quarter: 2008Q3

REPORT INFORMATION
  Report Type: 
  Country: None (occurrence: None)
  Receive Date: 20080827
  Receipt Date: 20080331
  Transmission Date: 20090109
  Serious: No
  Sender: FDA-Public Use
  Company Number: US-ABBOTT-08P-163-0444530-00

PATIENT
  Sex: Female
  Weight: 63.106 kg

DRUGS (10)
  1. NIASPAN [Suspect]
     Indication: HIGH DENSITY LIPOPROTEIN DECREASED
     Route: 048
     Dates: start: 20080317
  2. PENTOSAN POLYSULFATE SODIUM [Concomitant]
     Indication: CYSTITIS NONINFECTIVE
     Route: 048
  3. SERETIDE [Concomitant]
     Indication: ASTHMA
     Route: 048
  4. ALBUTEROL [Concomitant]
     Indication: ASTHMA
     Route: 048
  5. RELAFIN [Concomitant]
     Indication: ARTHRITIS
     Route: 048
  6. LIDOCAINE [Concomitant]
     Indication: ARTHRITIS
     Route: 062
  7. FLECTOR [Concomitant]
     Indication: ARTHRITIS
     Route: 062
  8. LEVOSALBUTAMOL [Concomitant]
     Indication: ASTHMA
     Route: 055
  9. OLOPATADINE HYDROCHLORIDE [Concomitant]
     Indication: EYE PRURITUS
     Route: 047
  10. MOMETASONE FUROATE [Concomitant]
     Indication: ASTHMA

REACTIONS (4)
  - ABDOMINAL PAIN UPPER [None]
  - FLUSHING [None]
  - HEADACHE [None]
  - PRURITUS [None]
